FAERS Safety Report 25829502 (Version 1)
Quarter: 2025Q3

REPORT INFORMATION
  Report Type: Spontaneous
  Country: GB (occurrence: GB)
  Receive Date: 20250922
  Receipt Date: 20250922
  Transmission Date: 20251021
  Serious: Yes (Other)
  Sender: SANDOZ
  Company Number: GB-TEVA-2018-GB-959292

PATIENT
  Age: 4 Month
  Sex: Female

DRUGS (24)
  1. ALEMTUZUMAB [Suspect]
     Active Substance: ALEMTUZUMAB
     Indication: Bone marrow conditioning regimen
     Route: 065
     Dates: start: 2012
  2. ALEMTUZUMAB [Suspect]
     Active Substance: ALEMTUZUMAB
     Indication: Immunosuppressant drug therapy
     Route: 065
  3. THYMOCYTE IMMUNE GLOBULIN NOS [Suspect]
     Active Substance: THYMOCYTE IMMUNE GLOBULIN NOS
     Indication: Immunosuppressant drug therapy
     Route: 065
  4. THYMOCYTE IMMUNE GLOBULIN NOS [Suspect]
     Active Substance: THYMOCYTE IMMUNE GLOBULIN NOS
     Indication: Graft versus host disease in skin
     Route: 065
  5. BCG VACCINE [Suspect]
     Active Substance: BCG VACCINE
     Indication: Immunisation
     Route: 065
  6. CYCLOSPORINE [Suspect]
     Active Substance: CYCLOSPORINE
     Indication: Prophylaxis against graft versus host disease
     Route: 065
     Dates: start: 2012
  7. CIDOFOVIR [Suspect]
     Active Substance: CIDOFOVIR
     Indication: Immunosuppressant drug therapy
     Route: 065
  8. FLUDARABINE PHOSPHATE [Suspect]
     Active Substance: FLUDARABINE PHOSPHATE
     Indication: Bone marrow conditioning regimen
     Route: 065
     Dates: start: 2012
  9. FLUDARABINE PHOSPHATE [Suspect]
     Active Substance: FLUDARABINE PHOSPHATE
     Route: 065
  10. FLUDARABINE PHOSPHATE [Suspect]
     Active Substance: FLUDARABINE PHOSPHATE
     Indication: Immunosuppressant drug therapy
     Route: 065
  11. INFLIXIMAB [Suspect]
     Active Substance: INFLIXIMAB
     Dosage: DURING 1ST TRANSPLANTATION
     Route: 065
  12. INFLIXIMAB [Suspect]
     Active Substance: INFLIXIMAB
     Indication: Graft versus host disease in skin
     Route: 065
  13. METHYLPREDNISOLONE [Suspect]
     Active Substance: METHYLPREDNISOLONE
     Indication: Graft versus host disease in skin
     Route: 065
  14. METHYLPREDNISOLONE [Suspect]
     Active Substance: METHYLPREDNISOLONE
     Indication: Immunosuppressant drug therapy
     Route: 065
  15. MYCOPHENOLATE MOFETIL [Suspect]
     Active Substance: MYCOPHENOLATE MOFETIL
     Indication: Prophylaxis against graft versus host disease
     Route: 065
  16. MYCOPHENOLATE MOFETIL [Suspect]
     Active Substance: MYCOPHENOLATE MOFETIL
     Indication: Graft versus host disease in skin
     Route: 065
     Dates: start: 2012
  17. TACROLIMUS [Suspect]
     Active Substance: TACROLIMUS
     Indication: Prophylaxis against graft versus host disease
     Route: 065
  18. THIOTEPA [Suspect]
     Active Substance: THIOTEPA
     Route: 065
  19. THIOTEPA [Suspect]
     Active Substance: THIOTEPA
     Indication: Immunosuppressant drug therapy
     Route: 065
  20. TREOSULFAN [Suspect]
     Active Substance: TREOSULFAN
     Indication: Immunosuppressant drug therapy
     Route: 065
     Dates: start: 2012, end: 2013
  21. TREOSULFAN [Suspect]
     Active Substance: TREOSULFAN
     Indication: Bone marrow conditioning regimen
     Route: 065
  22. TREOSULFAN [Suspect]
     Active Substance: TREOSULFAN
     Route: 065
  23. HYDROCORTISONE [Concomitant]
     Active Substance: HYDROCORTISONE
     Indication: Immunosuppressant drug therapy
     Route: 065
     Dates: start: 201509, end: 201510
  24. URSODIOL [Concomitant]
     Active Substance: URSODIOL
     Indication: Product used for unknown indication
     Route: 065

REACTIONS (13)
  - Thrombotic microangiopathy [Unknown]
  - Adenovirus infection [Recovered/Resolved]
  - Hypertension [Unknown]
  - Gastroenteritis norovirus [Recovered/Resolved]
  - Cytomegalovirus infection [Unknown]
  - Immune reconstitution inflammatory syndrome [Unknown]
  - Pneumonitis [Unknown]
  - Vaccination site inflammation [Unknown]
  - Lymphadenopathy [Unknown]
  - Product use in unapproved indication [Unknown]
  - Off label use [Unknown]
  - Mucosal inflammation [Unknown]
  - Product use issue [Unknown]
